FAERS Safety Report 16637155 (Version 3)
Quarter: 2020Q1

REPORT INFORMATION
  Report Type: Report from Study
  Country: DE (occurrence: DE)
  Receive Date: 20190726
  Receipt Date: 20200310
  Transmission Date: 20200409
  Serious: Yes (Hospitalization, Other)
  Sender: FDA-Public Use
  Company Number: DE-MYLANLABS-2019M1069176

PATIENT
  Age: 61 Year
  Sex: Female

DRUGS (2)
  1. METHOTREXATE. [Suspect]
     Active Substance: METHOTREXATE
     Indication: RHEUMATOID ARTHRITIS
     Dosage: 17.5 MILLIGRAM, QWK
     Route: 065
  2. ABATACEPT [Suspect]
     Active Substance: ABATACEPT
     Indication: RHEUMATOID ARTHRITIS
     Dosage: 125 MILLIGRAM, QWK
     Route: 065

REACTIONS (10)
  - Gastrointestinal infection [Recovered/Resolved]
  - Oral herpes [Recovered/Resolved]
  - Clavicle fracture [Not Recovered/Not Resolved]
  - Tendon rupture [Recovered/Resolved]
  - Impaired healing [Not Recovered/Not Resolved]
  - Sinusitis [Unknown]
  - Depression [Not Recovered/Not Resolved]
  - Fall [Not Recovered/Not Resolved]
  - Chondropathy [Not Recovered/Not Resolved]
  - Urinary tract infection [Recovered/Resolved]

NARRATIVE: CASE EVENT DATE: 20171215
